FAERS Safety Report 18981130 (Version 1)
Quarter: 2021Q1

REPORT INFORMATION
  Report Type: Spontaneous
  Country: JP (occurrence: JP)
  Receive Date: 20210308
  Receipt Date: 20210308
  Transmission Date: 20210420
  Serious: Yes (Life-Threatening, Hospitalization, Other)
  Sender: FDA-Public Use
  Company Number: JP-PFIZER INC-2021224662

PATIENT
  Age: 9 Decade
  Sex: Female

DRUGS (1)
  1. RHEUMATREX [Suspect]
     Active Substance: METHOTREXATE SODIUM
     Indication: RHEUMATOID ARTHRITIS
     Dosage: 4 MG OR 6 MG, WEEKLY
     Route: 048
     Dates: end: 202010

REACTIONS (3)
  - Leukoencephalopathy [Not Recovered/Not Resolved]
  - Pleural effusion [Unknown]
  - Altered state of consciousness [Unknown]
